FAERS Safety Report 22615183 (Version 5)
Quarter: 2024Q1

REPORT INFORMATION
  Report Type: Spontaneous
  Country: US (occurrence: US)
  Receive Date: 20230619
  Receipt Date: 20240122
  Transmission Date: 20240410
  Serious: No
  Sender: FDA-Public Use
  Company Number: US-VERTEX PHARMACEUTICALS-2023-008673

PATIENT
  Age: 21 Year
  Sex: Female
  Weight: 46 kg

DRUGS (2)
  1. TRIKAFTA [Suspect]
     Active Substance: ELEXACAFTOR\IVACAFTOR\TEZACAFTOR
     Indication: Cystic fibrosis
     Dosage: FULL DOSE- 2 TAB IN AM, 1 TAB IN PM
     Route: 048
     Dates: start: 20191226, end: 202102
  2. TRIKAFTA [Suspect]
     Active Substance: ELEXACAFTOR\IVACAFTOR\TEZACAFTOR
     Dosage: FLIPPED AM AND PM DOSE (1 BLUE TAB IN AM; 2 ORANGE TABS IN PM)
     Route: 048
     Dates: start: 202102

REACTIONS (4)
  - Initial insomnia [Unknown]
  - Fatigue [Unknown]
  - Asthenia [Unknown]
  - Middle insomnia [Unknown]

NARRATIVE: CASE EVENT DATE: 20200101
